FAERS Safety Report 7014786 (Version 21)
Quarter: 2017Q4

REPORT INFORMATION
  Report Type: Report from Study
  Country: CA (occurrence: CA)
  Receive Date: 20090609
  Receipt Date: 20171106
  Transmission Date: 20180321
  Serious: Yes (Other)
  Sender: FDA-Public Use
  Company Number: PHHY2009CA21626

PATIENT
  Age: 56 Year
  Sex: Female

DRUGS (23)
  1. SANDOSTATIN LAR DEPOT [Suspect]
     Active Substance: OCTREOTIDE ACETATE
     Dosage: 20 MG, EVERY 2 WEEKS
     Route: 030
     Dates: start: 20121120
  2. VITAMIN D [Concomitant]
     Active Substance: CHOLECALCIFEROL
     Indication: PRODUCT USED FOR UNKNOWN INDICATION
     Dosage: 1200 U, QD
     Route: 065
  3. SANDOSTATIN LAR DEPOT [Suspect]
     Active Substance: OCTREOTIDE ACETATE
     Dosage: 20 MG, (EVERY 10 DAYS)
     Route: 030
     Dates: start: 20140310
  4. TRAMACET [Concomitant]
     Active Substance: ACETAMINOPHEN\TRAMADOL
     Indication: ACROMEGALY
     Dosage: 2 DF, UNK
     Route: 065
  5. PARIET [Concomitant]
     Active Substance: RABEPRAZOLE SODIUM
     Indication: PRODUCT USED FOR UNKNOWN INDICATION
     Dosage: 20 MG, QD
     Route: 048
  6. OMEGA-3 FATTY ACIDS [Concomitant]
     Active Substance: OMEGA-3 FATTY ACIDS
     Indication: PRODUCT USED FOR UNKNOWN INDICATION
     Route: 065
  7. MS CONTIN [Concomitant]
     Active Substance: MORPHINE SULFATE
     Indication: PRODUCT USED FOR UNKNOWN INDICATION
     Dosage: 15 MG, BID
     Route: 065
  8. SANDOSTATIN LAR DEPOT [Suspect]
     Active Substance: OCTREOTIDE ACETATE
     Dosage: 20 MG, (EVERY 10 DAYS)
     Route: 030
     Dates: start: 20090227
  9. SANDOSTATIN [Suspect]
     Active Substance: OCTREOTIDE ACETATE
     Indication: ACROMEGALY
     Dosage: 25 UG, TID
     Route: 058
     Dates: start: 20080417
  10. NAPROXEN. [Concomitant]
     Active Substance: NAPROXEN
     Indication: PRODUCT USED FOR UNKNOWN INDICATION
     Dosage: 250 OT, BID
     Route: 065
  11. VITAMIN C [Concomitant]
     Active Substance: ASCORBIC ACID
     Indication: PRODUCT USED FOR UNKNOWN INDICATION
     Route: 065
  12. EPREX [Concomitant]
     Active Substance: ERYTHROPOIETIN
     Indication: PRODUCT USED FOR UNKNOWN INDICATION
     Route: 065
  13. L-THYROXIN [Concomitant]
     Active Substance: LEVOTHYROXINE SODIUM
     Dosage: 300 MG, UNK (200 MG MONDAY TO SATURDAY AND 100 MG ON SUNDAY)
     Route: 065
  14. NORTRIPTYLINE [Concomitant]
     Active Substance: NORTRIPTYLINE
     Indication: PAIN
     Dosage: 10 MG, QD (TITRATING DOSE UP TO 50 MG DAILY)
     Route: 065
     Dates: start: 20170101
  15. L-THYROXIN [Concomitant]
     Active Substance: LEVOTHYROXINE SODIUM
     Indication: PRODUCT USED FOR UNKNOWN INDICATION
     Dosage: 50 MG, UNK
     Route: 065
  16. VITAMIN B COMPLEX [Concomitant]
     Active Substance: CYANOCOBALAMIN\DEXPANTHENOL\NIACINAMIDE\PYRIDOXINE HYDROCHLORIDE\RIBOFLAVIN 5^-PHOSPHATE SODIUM\THIAMINE HYDROCHLORIDE\VITAMIN B COMPLEX
     Indication: PRODUCT USED FOR UNKNOWN INDICATION
     Route: 065
  17. AVAPRO [Concomitant]
     Active Substance: IRBESARTAN
     Indication: PRODUCT USED FOR UNKNOWN INDICATION
     Dosage: 300 MG, QD
     Route: 065
  18. MORPHINE SULFATE. [Concomitant]
     Active Substance: MORPHINE SULFATE
     Indication: PRODUCT USED FOR UNKNOWN INDICATION
     Dosage: 5 MG, PRN
     Route: 065
  19. SANDOSTATIN LAR DEPOT [Suspect]
     Active Substance: OCTREOTIDE ACETATE
     Indication: ACROMEGALY
     Dosage: 20 MG, EVERY 2 WEEKS
     Route: 030
     Dates: start: 20080604
  20. AVALIDE [Concomitant]
     Active Substance: HYDROCHLOROTHIAZIDE\IRBESARTAN
     Indication: PRODUCT USED FOR UNKNOWN INDICATION
     Dosage: 25 MG, QD
     Route: 048
  21. IRON [Concomitant]
     Active Substance: IRON
     Indication: PRODUCT USED FOR UNKNOWN INDICATION
     Route: 042
  22. L-THYROXIN [Concomitant]
     Active Substance: LEVOTHYROXINE SODIUM
     Dosage: 75 MG, (70-50 MG) UNK
     Route: 065
  23. HYDROCHLOROTHIAZIDE. [Concomitant]
     Active Substance: HYDROCHLOROTHIAZIDE
     Indication: PRODUCT USED FOR UNKNOWN INDICATION
     Dosage: 25 MG, QD
     Route: 065

REACTIONS (42)
  - Blood pressure increased [Unknown]
  - Pneumonia [Unknown]
  - Respiratory rate decreased [Unknown]
  - Arthralgia [Not Recovered/Not Resolved]
  - Blood iron decreased [Unknown]
  - Dyspnoea exertional [Unknown]
  - Terminal state [Unknown]
  - Furuncle [Unknown]
  - Haemoglobin decreased [Unknown]
  - Malaise [Unknown]
  - Peripheral swelling [Not Recovered/Not Resolved]
  - Abdominal discomfort [Recovering/Resolving]
  - Injection site pain [Unknown]
  - Diarrhoea [Recovering/Resolving]
  - Pain [Unknown]
  - Fatigue [Unknown]
  - Vomiting [Recovering/Resolving]
  - Wrong technique in product usage process [Unknown]
  - Needle issue [Unknown]
  - Pyrexia [Unknown]
  - Blood pressure diastolic decreased [Unknown]
  - Somnolence [Unknown]
  - Body temperature increased [Recovering/Resolving]
  - Weight decreased [Unknown]
  - Blood pressure systolic increased [Unknown]
  - Bronchitis [Unknown]
  - Constipation [Unknown]
  - Procedural pain [Unknown]
  - Blood cholesterol increased [Unknown]
  - Road traffic accident [Unknown]
  - Oedema peripheral [Not Recovered/Not Resolved]
  - Cortisol decreased [Unknown]
  - Abscess oral [Unknown]
  - Cough [Unknown]
  - Abnormal behaviour [Unknown]
  - Fall [Unknown]
  - Inflammation [Unknown]
  - Injection site swelling [Unknown]
  - Inappropriate schedule of drug administration [Unknown]
  - Intestinal obstruction [Recovered/Resolved]
  - Bone swelling [Unknown]
  - Nasopharyngitis [Unknown]

NARRATIVE: CASE EVENT DATE: 20080604
